FAERS Safety Report 5081226-3 (Version None)
Quarter: 2006Q3

REPORT INFORMATION
  Report Type: 
  Country: None (occurrence: None)
  Receive Date: 20060720
  Receipt Date: 20060313
  Transmission Date: 20061208
  Serious: Yes (Hospitalization)
  Sender: FDA-Public Use
  Company Number: 2006035391

PATIENT
  Age: 74 Year
  Sex: Male
  Weight: 98.8842 kg

DRUGS (11)
  1. CELEBREX [Suspect]
     Indication: BACK PAIN
     Dosage: (1 IN 1 D),ORAL
     Route: 048
     Dates: start: 20050901, end: 20060201
  2. AMIODARONE (AMIODARONE) [Concomitant]
  3. WARFARIN SODIUM [Concomitant]
  4. ZESTRIL [Concomitant]
  5. HYDROCHLOROTHIAZIDE [Concomitant]
  6. POTASSIUM (POTASSIUM) [Concomitant]
  7. WELLBUTRIN XL [Concomitant]
  8. TOPROL-XL [Concomitant]
  9. ALLOPURINOL [Concomitant]
  10. TAMSULOSIN HYDROCHLORIDE (TAMSULOSIN HYDROCHLORIDE) [Concomitant]
  11. VYTORIN [Concomitant]

REACTIONS (1)
  - TRANSIENT ISCHAEMIC ATTACK [None]
